FAERS Safety Report 8132457-7 (Version None)
Quarter: 2012Q1

REPORT INFORMATION
  Report Type: 
  Country: None (occurrence: None)
  Receive Date: 20120207
  Receipt Date: 20120126
  Transmission Date: 20120608
  Serious: Yes (Other)
  Sender: FDA-Public Use
  Company Number: 1176473

PATIENT
  Age: 21 Year
  Sex: Male

DRUGS (4)
  1. MEROPENEM [Suspect]
     Indication: CYSTIC FIBROSIS
     Dosage: 2 G GRAM(S), 1 DAY, INTRAVENOUS (NOT OTHERWISE SPECIFIED)
     Route: 042
  2. MEROPENEM [Suspect]
     Indication: CYSTIC FIBROSIS
     Dosage: 2 G GRAM(S), 1 DAY, INTRAVENOUS (NOT OTHERWISE SPECIFIED)
     Route: 042
  3. CEFTAZIDIME [Concomitant]
  4. GENTAMICIN [Concomitant]

REACTIONS (4)
  - AMNESIA [None]
  - PSYCHOTIC DISORDER [None]
  - FEELING ABNORMAL [None]
  - MOOD SWINGS [None]
